FAERS Safety Report 5267747-9 (Version None)
Quarter: 2007Q1

REPORT INFORMATION
  Report Type: 
  Country: None (occurrence: None)
  Receive Date: 20070316
  Receipt Date: 20070306
  Transmission Date: 20070707
  Serious: Yes (Hospitalization, Disabling)
  Sender: FDA-Public Use
  Company Number: FR-PFIZER INC-2007015294

PATIENT
  Sex: Female
  Weight: 52 kg

DRUGS (9)
  1. TRIFLUCAN [Suspect]
     Indication: CRYPTOCOCCOSIS
     Dosage: DAILY DOSE:400MG
  2. AMPHOTERICIN B [Concomitant]
  3. FLUOROURACIL [Concomitant]
  4. TIMOPTIC [Concomitant]
  5. DOMPERIDONE [Concomitant]
     Route: 048
  6. FENTANYL [Concomitant]
     Route: 061
  7. MORPHINE SULFATE [Concomitant]
     Route: 048
  8. CALCIUM FOLINATE [Concomitant]
     Route: 048
  9. CLONAZEPAM [Concomitant]
     Route: 048

REACTIONS (3)
  - ARTHRALGIA [None]
  - DRUG RESISTANCE [None]
  - OSTEOARTHRITIS [None]
